FAERS Safety Report 5002754-2 (Version None)
Quarter: 2006Q2

REPORT INFORMATION
  Report Type: 
  Country: None (occurrence: None)
  Receive Date: 20060516
  Receipt Date: 20060504
  Transmission Date: 20061013
  Serious: Yes (Hospitalization)
  Sender: FDA-Public Use
  Company Number: CH-BRISTOL-MYERS SQUIBB COMPANY-13369038

PATIENT
  Age: 61 Year
  Sex: Male

DRUGS (3)
  1. SELIPRAN [Suspect]
     Indication: DYSLIPIDAEMIA
     Route: 048
     Dates: start: 20050704
  2. CANDESARTAN [Concomitant]
  3. ASPIRIN [Concomitant]

REACTIONS (2)
  - LACUNAR INFARCTION [None]
  - NERVOUS SYSTEM DISORDER [None]
